FAERS Safety Report 23836851 (Version 1)
Quarter: 2024Q2

REPORT INFORMATION
  Report Type: Spontaneous
  Country: US (occurrence: US)
  Receive Date: 20240509
  Receipt Date: 20240509
  Transmission Date: 20240716
  Serious: Yes (Hospitalization, Other)
  Sender: FDA-Public Use
  Company Number: US-OTSUKA-2024_012833

PATIENT
  Sex: Female
  Weight: 78.93 kg

DRUGS (3)
  1. ABILIFY MAINTENA [Suspect]
     Active Substance: ARIPIPRAZOLE
     Indication: Bipolar disorder
     Dosage: UNK
     Route: 065
  2. ABILIFY [Suspect]
     Active Substance: ARIPIPRAZOLE
     Indication: Bipolar disorder
     Dosage: 15 MG
     Route: 048
  3. ARIPIPRAZOLE [Suspect]
     Active Substance: ARIPIPRAZOLE
     Indication: Bipolar disorder
     Dosage: 10 MG
     Route: 065

REACTIONS (10)
  - Mania [Unknown]
  - Depression [Unknown]
  - Suicidal ideation [Unknown]
  - Illness [Unknown]
  - Mental disorder [Unknown]
  - Hypertension [Not Recovered/Not Resolved]
  - Drug effect less than expected [Not Recovered/Not Resolved]
  - Inability to afford medication [Unknown]
  - Treatment noncompliance [Unknown]
  - Therapy cessation [Unknown]
